FAERS Safety Report 9278566 (Version 2)
Quarter: 2013Q2

REPORT INFORMATION
  Report Type: Spontaneous
  Country: PL (occurrence: PL)
  Receive Date: 20130508
  Receipt Date: 20130517
  Transmission Date: 20140414
  Serious: Yes (Hospitalization, Disabling)
  Sender: FDA-Public Use
  Company Number: PHHY2013PL043069

PATIENT
  Age: 57 Year
  Sex: Male
  Weight: 76 kg

DRUGS (1)
  1. CERTICAN [Suspect]
     Indication: LIVER TRANSPLANT
     Dosage: 2 MG, PER DAY
     Route: 048
     Dates: start: 20130125, end: 20130320

REACTIONS (3)
  - Oesophageal pain [Recovered/Resolved]
  - Chest pain [Recovered/Resolved]
  - Anxiety [Recovered/Resolved]
